FAERS Safety Report 8676234 (Version 25)
Quarter: 2019Q4

REPORT INFORMATION
  Report Type: Spontaneous
  Country: GB (occurrence: GB)
  Receive Date: 20120720
  Receipt Date: 20191224
  Transmission Date: 20200122
  Serious: Yes (Congenital Anomaly, Other)
  Sender: FDA-Public Use
  Company Number: GB-MSD-1007GBR00039B1

PATIENT
  Age: 1 Day
  Sex: Male
  Weight: 3.1 kg

DRUGS (19)
  1. KALETRA [Suspect]
     Active Substance: LOPINAVIR\RITONAVIR
     Indication: PRODUCT USED FOR UNKNOWN INDICATION
     Dosage: UNK
     Route: 064
     Dates: start: 20100610
  2. KALETRA [Suspect]
     Active Substance: LOPINAVIR\RITONAVIR
     Indication: HIV INFECTION
  3. ISENTRESS [Suspect]
     Active Substance: RALTEGRAVIR POTASSIUM
     Indication: HIV INFECTION
  4. VIREAD [Suspect]
     Active Substance: TENOFOVIR DISOPROXIL FUMARATE
     Indication: HIV INFECTION
  5. LAMIVUDINE. [Suspect]
     Active Substance: LAMIVUDINE
     Indication: HIV INFECTION
  6. VIREAD [Suspect]
     Active Substance: TENOFOVIR DISOPROXIL FUMARATE
     Indication: PRODUCT USED FOR UNKNOWN INDICATION
     Dosage: UNK
     Route: 064
     Dates: start: 20100610
  7. NEVIRAPINE. [Suspect]
     Active Substance: NEVIRAPINE
     Indication: HIV INFECTION
  8. VIREAD [Suspect]
     Active Substance: TENOFOVIR DISOPROXIL FUMARATE
     Indication: FOETAL EXPOSURE DURING PREGNANCY
  9. LAMIVUDINE. [Suspect]
     Active Substance: LAMIVUDINE
     Indication: PRODUCT USED FOR UNKNOWN INDICATION
     Dosage: UNK
     Route: 064
     Dates: start: 20090101, end: 20100610
  10. ISENTRESS [Suspect]
     Active Substance: RALTEGRAVIR POTASSIUM
     Indication: FOETAL EXPOSURE DURING PREGNANCY
  11. ALUVIA [Suspect]
     Active Substance: LOPINAVIR\RITONAVIR
     Indication: HIV INFECTION
     Dosage: UNK
     Route: 064
  12. LAMIVUDINE. [Suspect]
     Active Substance: LAMIVUDINE
     Indication: FOETAL EXPOSURE DURING PREGNANCY
  13. ISENTRESS [Suspect]
     Active Substance: RALTEGRAVIR POTASSIUM
     Indication: PRODUCT USED FOR UNKNOWN INDICATION
     Dosage: 800 MILLIGRAM, QD
     Route: 064
     Dates: start: 20100610
  14. NEVIRAPINE. [Suspect]
     Active Substance: NEVIRAPINE
     Indication: FOETAL EXPOSURE DURING PREGNANCY
  15. KALETRA [Suspect]
     Active Substance: LOPINAVIR\RITONAVIR
     Indication: FOETAL EXPOSURE DURING PREGNANCY
  16. ZIDOVUDINE. [Suspect]
     Active Substance: ZIDOVUDINE
     Indication: PRODUCT USED FOR UNKNOWN INDICATION
     Dosage: START DATE: MONTH UNKNOWN
     Route: 064
     Dates: start: 20090101, end: 20100610
  17. ZIDOVUDINE. [Suspect]
     Active Substance: ZIDOVUDINE
     Indication: HIV INFECTION
  18. ZIDOVUDINE. [Suspect]
     Active Substance: ZIDOVUDINE
     Indication: EXPOSURE DURING PREGNANCY
  19. NEVIRAPINE. [Suspect]
     Active Substance: NEVIRAPINE
     Indication: PRODUCT USED FOR UNKNOWN INDICATION
     Dosage: MATERNAL DOSE: UNKNOWN, START DATE: MONTH UNKNOWN
     Route: 064
     Dates: start: 20090101, end: 20100610

REACTIONS (2)
  - Volvulus [Unknown]
  - Foetal exposure during pregnancy [Recovered/Resolved]
